FAERS Safety Report 5419014-8 (Version None)
Quarter: 2007Q3

REPORT INFORMATION
  Report Type: 
  Country: None (occurrence: None)
  Receive Date: 20070817
  Receipt Date: 20070809
  Transmission Date: 20080115
  Serious: Yes (Hospitalization, Other)
  Sender: FDA-Public Use
  Company Number: CA-PFIZER INC-2007067117

PATIENT
  Age: 79 Year
  Sex: Female

DRUGS (8)
  1. ZOLOFT [Suspect]
     Dosage: DAILY DOSE:125MG
     Route: 048
  2. LOPRESSOR [Concomitant]
  3. HYDROCHLOROTHIAZIDE [Concomitant]
  4. ASPIRIN [Concomitant]
  5. PREMARIN [Concomitant]
     Dosage: DAILY DOSE:.3MG
  6. ADALAT CC [Concomitant]
  7. RISPERIDONE [Concomitant]
     Dosage: DAILY DOSE:1MG
  8. MIRTAZAPINE [Concomitant]

REACTIONS (3)
  - DEHYDRATION [None]
  - LYMPHOCYTE COUNT DECREASED [None]
  - VOMITING [None]
